FAERS Safety Report 7783856-4 (Version None)
Quarter: 2011Q3

REPORT INFORMATION
  Report Type: 
  Country: None (occurrence: None)
  Receive Date: 20110928
  Receipt Date: 20110922
  Transmission Date: 20111222
  Serious: Yes (Hospitalization)
  Sender: FDA-Public Use
  Company Number: US-GLAXOSMITHKLINE-A0841708A

PATIENT
  Age: 54 Year
  Sex: Male
  Weight: 90.9 kg

DRUGS (4)
  1. METOPROLOL TARTRATE [Concomitant]
  2. LISINOPRIL [Concomitant]
  3. LEVOTHYROXINE [Concomitant]
  4. AVANDAMET [Suspect]
     Indication: DIABETES MELLITUS
     Route: 048
     Dates: start: 20051203, end: 20080101

REACTIONS (3)
  - CORONARY ARTERY DISEASE [None]
  - BLOOD CHOLESTEROL ABNORMAL [None]
  - MYOCARDIAL INFARCTION [None]
